FAERS Safety Report 7779778-5 (Version None)
Quarter: 2011Q3

REPORT INFORMATION
  Report Type: 
  Country: None (occurrence: None)
  Receive Date: 20110927
  Receipt Date: 20110915
  Transmission Date: 20111222
  Serious: Yes (Other)
  Sender: FDA-Public Use
  Company Number: CA-JNJFOC-20110907619

PATIENT
  Sex: Female
  Weight: 99 kg

DRUGS (1)
  1. REMICADE [Suspect]
     Indication: COLITIS ULCERATIVE
     Dosage: 100 MG/VIAL
     Route: 042
     Dates: start: 20090512

REACTIONS (4)
  - HYPERAESTHESIA [None]
  - OPEN WOUND [None]
  - PRURITUS [None]
  - SKIN ULCER [None]
